FAERS Safety Report 8576615-6 (Version None)
Quarter: 2012Q3

REPORT INFORMATION
  Report Type: 
  Country: None (occurrence: None)
  Receive Date: 20120807
  Receipt Date: 20120802
  Transmission Date: 20120928
  Serious: Yes (Life-Threatening)
  Sender: FDA-Public Use
  Company Number: CL-CELGENEUS-034-C5013-12060441

PATIENT
  Sex: Male
  Weight: 79 kg

DRUGS (8)
  1. TESTOTERONE [Concomitant]
     Dosage: 1000 MILLIGRAM
     Route: 030
     Dates: start: 20070101
  2. LOSARTAN POTASSIUM [Concomitant]
     Dosage: 50 MILLIGRAM
     Route: 048
     Dates: start: 20050101
  3. ALLOPURINOL [Concomitant]
     Indication: PROPHYLAXIS
     Dosage: 300 MILLIGRAM
     Route: 048
     Dates: start: 20110813, end: 20110920
  4. LENALIDOMIDE [Suspect]
     Route: 048
     Dates: start: 20110816
  5. LENALIDOMIDE [Suspect]
     Route: 048
     Dates: start: 20110924, end: 20110929
  6. CHLORPHENIRAMINE TAB [Concomitant]
     Route: 048
     Dates: start: 20110914, end: 20111020
  7. OMEPRAZOLE [Concomitant]
     Dosage: 20 MILLIGRAM
     Route: 065
     Dates: start: 20110201
  8. CLONAZEPAM [Concomitant]
     Indication: INSOMNIA
     Route: 048
     Dates: start: 20050101

REACTIONS (1)
  - METASTASES TO PERITONEUM [None]
